FAERS Safety Report 22151094 (Version 6)
Quarter: 2023Q2

REPORT INFORMATION
  Report Type: Spontaneous
  Country: US (occurrence: US)
  Receive Date: 20230329
  Receipt Date: 20230608
  Transmission Date: 20230721
  Serious: No
  Sender: FDA-Public Use
  Company Number: US-SA-SAC20230327001415

PATIENT
  Age: 15 Year
  Sex: Male
  Weight: 50.8 kg

DRUGS (1)
  1. DUPIXENT [Suspect]
     Active Substance: DUPILUMAB
     Indication: Eosinophilic oesophagitis
     Dosage: 300 MG, QW
     Route: 058
     Dates: start: 202303

REACTIONS (3)
  - Injection site pain [Not Recovered/Not Resolved]
  - Injection site vesicles [Unknown]
  - Injection site swelling [Not Recovered/Not Resolved]
